FAERS Safety Report 19520058 (Version 4)
Quarter: 2021Q4

REPORT INFORMATION
  Report Type: Spontaneous
  Country: JP (occurrence: JP)
  Receive Date: 20210712
  Receipt Date: 20211110
  Transmission Date: 20220304
  Serious: Yes (Other)
  Sender: FDA-Public Use
  Company Number: JP-BRISTOL-MYERS SQUIBB COMPANY-BMS-2021-066584

PATIENT
  Age: 81 Year
  Sex: Male

DRUGS (2)
  1. OPDIVO [Suspect]
     Active Substance: NIVOLUMAB
     Indication: Malignant melanoma
     Dosage: UNK
     Route: 041
  2. YERVOY [Suspect]
     Active Substance: IPILIMUMAB
     Indication: Malignant melanoma
     Dosage: UNK
     Route: 041

REACTIONS (7)
  - Cushing^s syndrome [Unknown]
  - Blood luteinising hormone abnormal [Unknown]
  - Blood follicle stimulating hormone abnormal [Unknown]
  - Blood prolactin abnormal [Unknown]
  - Blood aldosterone abnormal [Unknown]
  - Cortisol abnormal [Unknown]
  - Blood corticotrophin abnormal [Unknown]
